FAERS Safety Report 11030532 (Version 1)
Quarter: 2015Q2

REPORT INFORMATION
  Report Type: Spontaneous
  Country: US (occurrence: None)
  Receive Date: 20150413
  Receipt Date: 20150413
  Transmission Date: 20150821
  Serious: Yes (Other)
  Sender: FDA-Public Use
  Company Number: 2015GR_BP000639

PATIENT
  Age: 80 Year
  Sex: Male

DRUGS (3)
  1. LEVOTHYROXINE (LEVOTHYROXINE) [Concomitant]
     Active Substance: LEVOTHYROXINE
  2. ASPIRIN. [Concomitant]
     Active Substance: ASPIRIN
  3. FINASTERIDE 5 MG (FINASTERIDE) (5 MILLIGRAM) [Suspect]
     Active Substance: FINASTERIDE
     Indication: PRODUCT USED FOR UNKNOWN INDICATION
     Dosage: 5 MG (5 MG, ONCE DAILY), UNKNOWN

REACTIONS (4)
  - Arrhythmia [None]
  - Generalised tonic-clonic seizure [None]
  - Hypotension [None]
  - Accidental overdose [None]
